FAERS Safety Report 17561869 (Version 2)
Quarter: 2020Q3

REPORT INFORMATION
  Report Type: Spontaneous
  Country: US (occurrence: US)
  Receive Date: 20200319
  Receipt Date: 20200925
  Transmission Date: 20201102
  Serious: No
  Sender: FDA-Public Use
  Company Number: US-TEVA-2020-US-1205419

PATIENT
  Age: 48 Year
  Sex: Female

DRUGS (2)
  1. COPAXONE [Suspect]
     Active Substance: GLATIRAMER ACETATE
     Indication: MULTIPLE SCLEROSIS
     Route: 058
     Dates: start: 20180314
  2. BUPROPION. [Concomitant]
     Active Substance: BUPROPION

REACTIONS (7)
  - Fatigue [Not Recovered/Not Resolved]
  - Injection site pain [Not Recovered/Not Resolved]
  - Incorrect route of product administration [Unknown]
  - Injection site scab [Not Recovered/Not Resolved]
  - Wrong technique in product usage process [Unknown]
  - Depression [Not Recovered/Not Resolved]
  - Stress at work [Unknown]

NARRATIVE: CASE EVENT DATE: 20200226
